FAERS Safety Report 7039476 (Version 3)
Quarter: 2018Q4

REPORT INFORMATION
  Report Type: Spontaneous
  Country: GB (occurrence: GB)
  Receive Date: 20090702
  Receipt Date: 20181221
  Transmission Date: 20190205
  Serious: Yes (Other)
  Sender: FDA-Public Use
  Company Number: GB-RANBAXY-2009RR-25256

PATIENT
  Age: 51 Year
  Sex: Female

DRUGS (6)
  1. KEPPRA [Concomitant]
     Active Substance: LEVETIRACETAM
  2. LAMOTRIGINE. [Concomitant]
     Active Substance: LAMOTRIGINE
  3. LYRICA [Suspect]
     Active Substance: PREGABALIN
     Dosage: 25 MG, BID
  4. EPANUTIN [Concomitant]
     Active Substance: PHENYTOIN SODIUM
  5. LYRICA [Concomitant]
     Active Substance: PREGABALIN
  6. CIPROFLOXACIN. [Suspect]
     Active Substance: CIPROFLOXACIN

REACTIONS (2)
  - Epilepsy [Unknown]
  - Potentiating drug interaction [Unknown]
